FAERS Safety Report 18530047 (Version 2)
Quarter: 2020Q4

REPORT INFORMATION
  Report Type: Spontaneous
  Country: US (occurrence: US)
  Receive Date: 20201120
  Receipt Date: 20201214
  Transmission Date: 20210114
  Serious: No
  Sender: FDA-Public Use
  Company Number: US-NOVOPROD-707985

PATIENT
  Age: 41 Year
  Sex: Female

DRUGS (3)
  1. NOVOLOG [Suspect]
     Active Substance: INSULIN ASPART
     Indication: GESTATIONAL DIABETES
     Dosage: 16 IU, QD
     Route: 058
     Dates: start: 201910
  2. LEVEMIR [Suspect]
     Active Substance: INSULIN DETEMIR
     Indication: GESTATIONAL DIABETES
     Dosage: 48 UNITS IN THE MORNING AND 32 UNITS AT NIGHT
     Route: 058
     Dates: start: 201910
  3. NOVOLOG [Suspect]
     Active Substance: INSULIN ASPART
     Dosage: 16 UNITS A DAY
     Route: 058
     Dates: start: 201910

REACTIONS (8)
  - Maternal exposure during pregnancy [Not Recovered/Not Resolved]
  - Wrong technique in product usage process [Unknown]
  - Blood glucose decreased [Unknown]
  - Pruritus [Not Recovered/Not Resolved]
  - Product communication issue [Unknown]
  - Urticaria [Not Recovered/Not Resolved]
  - Blood glucose increased [Unknown]
  - Expired product administered [Unknown]

NARRATIVE: CASE EVENT DATE: 201910
